FAERS Safety Report 4776810-8 (Version None)
Quarter: 2005Q3

REPORT INFORMATION
  Report Type: 
  Country: None (occurrence: None)
  Receive Date: 20050921
  Receipt Date: 20050919
  Transmission Date: 20060218
  Serious: Yes (Death, Hospitalization)
  Sender: FDA-Public Use
  Company Number: TPA2005A01078

PATIENT
  Age: 82 Year
  Sex: Female

DRUGS (2)
  1. ACTOS [Suspect]
     Dosage: PER ORAL
     Route: 048
  2. GLUCOTROL [Concomitant]

REACTIONS (1)
  - CARDIAC FAILURE CONGESTIVE [None]
